FAERS Safety Report 19682226 (Version 1)
Quarter: 2021Q3

REPORT INFORMATION
  Report Type: Spontaneous
  Country: US (occurrence: US)
  Receive Date: 20210810
  Receipt Date: 20210810
  Transmission Date: 20211014
  Serious: Yes (Death, Other)
  Sender: FDA-Public Use
  Company Number: US-LUPIN PHARMACEUTICALS INC.-2021-14251

PATIENT
  Age: 92 Year
  Sex: Male

DRUGS (3)
  1. MINOCYCLINE [Suspect]
     Active Substance: MINOCYCLINE HYDROCHLORIDE
     Indication: GLAUCOMA
     Dosage: 50 MILLIGRAM, BID
     Route: 048
  2. LATANOPROST. [Concomitant]
     Active Substance: LATANOPROST
     Indication: GLAUCOMA
     Dosage: UNK
     Route: 065
  3. TRYPAN BLUE [Suspect]
     Active Substance: TRYPAN BLUE
     Indication: PHOTODYNAMIC DIAGNOSTIC PROCEDURE
     Dosage: UNKAPPROXIMATELY 100?200 MICROLITERS
     Route: 065

REACTIONS (3)
  - Cerebral infarction [Fatal]
  - Thyroid disorder [Fatal]
  - Pigmentation disorder [Fatal]
